FAERS Safety Report 5071548-4 (Version None)
Quarter: 2006Q3

REPORT INFORMATION
  Report Type: 
  Country: None (occurrence: None)
  Receive Date: 20060803
  Receipt Date: 20060803
  Transmission Date: 20061208
  Serious: Yes (Hospitalization)
  Sender: FDA-Public Use
  Company Number: None

PATIENT
  Age: 73 Year
  Sex: Male
  Weight: 97.5 kg

DRUGS (1)
  1. LISINOPRIL [Suspect]
     Dosage: 20 MG PO DAILY
     Route: 048
     Dates: start: 20031020, end: 20060506

REACTIONS (3)
  - RENAL ARTERY STENOSIS [None]
  - RENAL FAILURE ACUTE [None]
  - TREATMENT NONCOMPLIANCE [None]
